FAERS Safety Report 20670997 (Version 1)
Quarter: 2022Q2

REPORT INFORMATION
  Report Type: Spontaneous
  Country: IT (occurrence: IT)
  Receive Date: 20220404
  Receipt Date: 20220404
  Transmission Date: 20220720
  Serious: No
  Sender: FDA-Public Use
  Company Number: None

PATIENT
  Age: 57 Year
  Sex: Male
  Weight: 118 kg

DRUGS (3)
  1. PAXLOVID [Suspect]
     Active Substance: NIRMATRELVIR\RITONAVIR
     Indication: COVID-19
     Dosage: TOTAL
     Route: 048
     Dates: start: 20220221, end: 20220225
  2. IBUPROFEN [Suspect]
     Active Substance: IBUPROFEN
     Indication: Antiinflammatory therapy
     Dosage: 800 MG, 1X/DAY
     Route: 048
     Dates: start: 20220218, end: 20220220
  3. IBUPROFEN [Suspect]
     Active Substance: IBUPROFEN
     Dosage: 2400 MG, 1X/DAY
     Dates: start: 20220220, end: 20220225

REACTIONS (2)
  - Abdominal pain upper [Recovered/Resolved]
  - Incorrect dosage administered [Unknown]

NARRATIVE: CASE EVENT DATE: 20220221
